FAERS Safety Report 5828789-5 (Version None)
Quarter: 2008Q3

REPORT INFORMATION
  Report Type: 
  Country: None (occurrence: None)
  Receive Date: 20080731
  Receipt Date: 20080723
  Transmission Date: 20090109
  Serious: Yes (Other)
  Sender: FDA-Public Use
  Company Number: DE-MERCK-0807DEU00090

PATIENT
  Age: 75 Year
  Sex: Female
  Weight: 96 kg

DRUGS (1)
  1. FOSAMAX [Suspect]
     Indication: OSTEOPOROSIS
     Route: 048
     Dates: start: 20080301

REACTIONS (2)
  - ATRIAL FIBRILLATION [None]
  - BLOOD PRESSURE INCREASED [None]
